FAERS Safety Report 8436563-9 (Version None)
Quarter: 2012Q2

REPORT INFORMATION
  Report Type: 
  Country: None (occurrence: None)
  Receive Date: 20120614
  Receipt Date: 20120605
  Transmission Date: 20120825
  Serious: Yes (Other)
  Sender: FDA-Public Use
  Company Number: US-ASTRAZENECA-2012SE37713

PATIENT
  Age: 73 Year
  Sex: Female

DRUGS (4)
  1. NAPROXEN [Concomitant]
     Indication: ARTHRITIS
  2. OMEPRAZOLE [Suspect]
     Indication: PROPHYLAXIS AGAINST GASTROINTESTINAL ULCER
  3. OMEPRAZOLE [Suspect]
  4. NAPROXEN [Concomitant]

REACTIONS (1)
  - CUTANEOUS LUPUS ERYTHEMATOSUS [None]
